FAERS Safety Report 12321110 (Version 1)
Quarter: 2016Q2

REPORT INFORMATION
  Report Type: Spontaneous
  Country: US (occurrence: US)
  Receive Date: 20160502
  Receipt Date: 20160502
  Transmission Date: 20160815
  Serious: No
  Sender: FDA-Public Use
  Company Number: US-BIOGEN-2016BI00227017

PATIENT
  Sex: Female

DRUGS (1)
  1. AVONEX [Suspect]
     Active Substance: INTERFERON BETA-1A
     Indication: MULTIPLE SCLEROSIS
     Dates: start: 20010122

REACTIONS (6)
  - Injury associated with device [Recovered/Resolved]
  - Anticipatory anxiety [Unknown]
  - Needle issue [Recovered/Resolved]
  - Device failure [Unknown]
  - Drug dose omission [Unknown]
  - Exposure via direct contact [Recovered/Resolved]
